FAERS Safety Report 8093020-X (Version None)
Quarter: 2012Q1

REPORT INFORMATION
  Report Type: 
  Country: None (occurrence: None)
  Receive Date: 20120128
  Receipt Date: 20111028
  Transmission Date: 20120608
  Serious: No
  Sender: FDA-Public Use
  Company Number: US-ABBOTT-10P-163-0629290-00

PATIENT
  Sex: Female
  Weight: 99.88 kg

DRUGS (8)
  1. HUMIRA [Suspect]
     Indication: PSORIATIC ARTHROPATHY
     Route: 058
     Dates: start: 20081101
  2. ZOLOFT [Concomitant]
     Indication: DEPRESSION
  3. NEXIUM [Concomitant]
     Indication: GASTROOESOPHAGEAL REFLUX DISEASE
  4. METHOTREXATE [Concomitant]
     Indication: RHEUMATOID ARTHRITIS
  5. DICLOFENAC [Concomitant]
     Indication: PAIN
     Dosage: BID
  6. PREDNISONE TAB [Concomitant]
     Indication: ARTHRITIS
     Dosage: BID
  7. HUMIRA [Suspect]
     Indication: RHEUMATOID ARTHRITIS
     Route: 058
     Dates: start: 20070101, end: 20090701
  8. LORATADINE [Concomitant]
     Indication: HYPERSENSITIVITY

REACTIONS (6)
  - ARTHRALGIA [None]
  - FATIGUE [None]
  - PAIN [None]
  - RHEUMATOID ARTHRITIS [None]
  - HEADACHE [None]
  - DRUG INEFFECTIVE [None]
